FAERS Safety Report 24347126 (Version 1)
Quarter: 2024Q3

REPORT INFORMATION
  Report Type: Spontaneous
  Country: DE (occurrence: DE)
  Receive Date: 20240921
  Receipt Date: 20240921
  Transmission Date: 20241017
  Serious: Yes (Hospitalization, Other)
  Sender: AMGEN
  Company Number: DE-AMGEN-DEUSP2024184772

PATIENT
  Age: 82 Year
  Sex: Female

DRUGS (1)
  1. APREMILAST [Suspect]
     Active Substance: APREMILAST
     Indication: Psoriatic arthropathy
     Dosage: UNK
     Route: 065

REACTIONS (4)
  - Cellulitis enterococcal [Recovered/Resolved]
  - Pseudomonal bacteraemia [Recovered/Resolved]
  - Electrolyte imbalance [Recovered/Resolved]
  - Wound infection pseudomonas [Recovered/Resolved]
